FAERS Safety Report 5640376-0 (Version None)
Quarter: 2008Q1

REPORT INFORMATION
  Report Type: 
  Country: None (occurrence: None)
  Receive Date: 20080227
  Receipt Date: 20080124
  Transmission Date: 20080703
  Serious: No
  Sender: FDA-Public Use
  Company Number: US-BAXTER-2008BH000735

PATIENT
  Age: 46 Year
  Sex: Female
  Weight: 74 kg

DRUGS (11)
  1. HEPARIN SODIUM [Suspect]
     Indication: THROMBOSIS PROPHYLAXIS
     Dosage: DOSE UNIT:UNKNOWN
     Route: 010
     Dates: start: 20050501, end: 20080101
  2. RENAGEL [Concomitant]
     Indication: PROPHYLAXIS
     Route: 065
     Dates: start: 20050501
  3. NEPHROCAPS [Concomitant]
     Indication: VITAMIN SUPPLEMENTATION
     Dosage: DOSE UNIT:UNKNOWN
     Route: 065
     Dates: start: 20050501
  4. SYNTHROID [Concomitant]
     Indication: THYROID DISORDER
     Route: 065
  5. HECTOROL [Concomitant]
     Indication: PARATHYROID DISORDER
     Route: 065
     Dates: start: 20071201
  6. TRAMADOL HCL [Concomitant]
     Indication: DIABETIC NEUROPATHY
     Route: 065
     Dates: start: 20000101
  7. AMITRIPTYLINE HYDROCHLORIDE [Concomitant]
     Indication: DIABETIC NEUROPATHY
     Route: 065
     Dates: start: 20071101
  8. VITAMIN D [Concomitant]
     Indication: DRUG USE FOR UNKNOWN INDICATION
     Route: 065
     Dates: start: 20071101
  9. PRILOSEC [Concomitant]
     Indication: DRUG USE FOR UNKNOWN INDICATION
     Dosage: DOSE UNIT:UNKNOWN
     Route: 065
     Dates: start: 20050501
  10. DOCUSATE SODIUM [Concomitant]
     Indication: LAXATIVE SUPPORTIVE CARE
     Route: 065
  11. WARFARIN SODIUM [Concomitant]
     Indication: DRUG USE FOR UNKNOWN INDICATION
     Route: 065
     Dates: start: 20060501

REACTIONS (5)
  - ASTHENIA [None]
  - DIARRHOEA [None]
  - DIZZINESS [None]
  - DYSSTASIA [None]
  - VOMITING [None]
